FAERS Safety Report 5404665-7 (Version None)
Quarter: 2007Q3

REPORT INFORMATION
  Report Type: 
  Country: None (occurrence: None)
  Receive Date: 20070731
  Receipt Date: 20070727
  Transmission Date: 20080115
  Serious: Yes (Disabling)
  Sender: FDA-Public Use
  Company Number: TCI2007A03567

PATIENT
  Age: 73 Year
  Sex: Male

DRUGS (12)
  1. LEUPROLIDE ACETATE [Suspect]
     Indication: PROSTATE CANCER
     Dosage: 11.25 MG  (11.25 MG, 1 IN 12 WK SUBCUTANEOUS
     Route: 058
     Dates: start: 20060329
  2. LEUPROLIDE ACETATE [Suspect]
     Indication: PROSTATE CANCER
     Dosage: 3.75 MG (3.75 MG, 1 IN28 D) SUBCUTANEOUS
     Route: 058
     Dates: start: 20051206, end: 20060104
  3. LANSOPRAZOLE [Concomitant]
  4. ERBANTIL (URAPIDIL) (CAPSULES) [Concomitant]
  5. CERNILTON (CERNILTON) TABLETS [Concomitant]
  6. CASODEX [Concomitant]
  7. PRAVASTATIN SODIUM [Concomitant]
  8. LASIX [Concomitant]
  9. UNIPHYL LA (THEOPHYLLINE) (TABLETS) [Concomitant]
  10. ADJUST-A (SENNA ALEXANDRINA LEAF) (TABLETS) [Concomitant]
  11. GASCON (DIMETICONE) (TABLETS) [Concomitant]
  12. GASMOTIN (MOSAPRIDE CITRATE) (TABLETS) [Concomitant]

REACTIONS (3)
  - HEPATIC FIBROSIS [None]
  - HEPATIC STEATOSIS [None]
  - OBESITY [None]
